FAERS Safety Report 25048092 (Version 5)
Quarter: 2025Q4

REPORT INFORMATION
  Report Type: Report from Study
  Country: EU (occurrence: EU)
  Receive Date: 20250306
  Receipt Date: 20251201
  Transmission Date: 20260118
  Serious: Yes (Hospitalization, Other)
  Sender: ABBVIE
  Company Number: EU-ABBVIE-6030876

PATIENT
  Age: 24 Year
  Sex: Female

DRUGS (24)
  1. RINVOQ [Suspect]
     Active Substance: UPADACITINIB
     Indication: Rheumatoid arthritis
     Route: 048
     Dates: start: 20230823, end: 20240715
  2. RINVOQ [Suspect]
     Active Substance: UPADACITINIB
     Indication: Rheumatoid arthritis
     Route: 048
     Dates: start: 20240801, end: 20250909
  3. NAPROXEN [Concomitant]
     Active Substance: NAPROXEN
     Indication: Axial spondyloarthritis
     Dosage: TIME INTERVAL: 0.33333333 WEEKS: 3 DAYS PER WEEK
     Dates: start: 20240829, end: 20250903
  4. NAPROXEN [Concomitant]
     Active Substance: NAPROXEN
     Indication: Axial spondyloarthritis
     Dates: start: 20230104, end: 20230111
  5. NAPROXEN [Concomitant]
     Active Substance: NAPROXEN
     Indication: Axial spondyloarthritis
     Dates: start: 20230206, end: 20230314
  6. OXYCODONE [Concomitant]
     Active Substance: OXYCODONE
     Indication: Product used for unknown indication
     Dosage: 40 MG
  7. OXYCODONE [Concomitant]
     Active Substance: OXYCODONE
     Indication: Product used for unknown indication
     Dosage: ACUTE 5MG
  8. OXYCODONE [Concomitant]
     Active Substance: OXYCODONE
     Indication: Product used for unknown indication
     Dosage: 20MG
  9. NOVAMINE [Concomitant]
     Active Substance: ALANINE\ARGININE\ASPARTIC ACID\GLUTAMIC ACID\GLYCINE\HISTIDINE\ISOLEUCINE\LEUCINE\LYSINE ACETATE\MET
     Indication: Product used for unknown indication
     Dosage: SULPHONE 1000 MG
  10. AMITRIPTYLINE [Concomitant]
     Active Substance: AMITRIPTYLINE
     Indication: Product used for unknown indication
     Dosage: 20 MG
  11. AMITRIPTYLINE [Concomitant]
     Active Substance: AMITRIPTYLINE
     Indication: Product used for unknown indication
     Dosage: 10 MG
  12. POLYETHYLENE GLYCOLS [Concomitant]
     Active Substance: POLYETHYLENE GLYCOLS
     Indication: Product used for unknown indication
  13. HERBALS [Concomitant]
     Active Substance: HERBALS
     Indication: Product used for unknown indication
  14. DIMENHYDRINATE [Concomitant]
     Active Substance: DIMENHYDRINATE
     Indication: Product used for unknown indication
     Dosage: 50 MG
  15. METAMIZOLE [Concomitant]
     Active Substance: METAMIZOLE
     Indication: Product used for unknown indication
     Dosage: 500 MG
  16. PANTOPRAZOLE [Concomitant]
     Active Substance: PANTOPRAZOLE
     Indication: Product used for unknown indication
     Dosage: 40 MG
  17. PROMETHAZINE [Concomitant]
     Active Substance: PROMETHAZINE HYDROCHLORIDE
     Indication: Product used for unknown indication
     Dosage: 25 MG
  18. VENLAFAXINE [Concomitant]
     Active Substance: VENLAFAXINE HYDROCHLORIDE
     Indication: Product used for unknown indication
     Dosage: 150 MG
  19. BIMZELX [Concomitant]
     Active Substance: BIMEKIZUMAB-BKZX
     Indication: Axial spondyloarthritis
     Dates: start: 20250910
  20. PROTHIPENDYL [Concomitant]
     Active Substance: PROTHIPENDYL
     Indication: Product used for unknown indication
     Dosage: 40MG
  21. SILICONE [Concomitant]
     Active Substance: SILICONE
     Indication: Product used for unknown indication
     Dosage: 85MG
  22. BUPROPION [Concomitant]
     Active Substance: BUPROPION
     Indication: Product used for unknown indication
     Dosage: 150MG
  23. METHOTREXATE [Concomitant]
     Active Substance: METHOTREXATE
     Indication: Product used for unknown indication
     Route: 048
     Dates: start: 20190915
  24. METHOTREXATE [Concomitant]
     Active Substance: METHOTREXATE
     Indication: Product used for unknown indication
     Dates: start: 20230104

REACTIONS (16)
  - SAPHO syndrome [Recovered/Resolved]
  - Pain [Unknown]
  - Depression [Recovered/Resolved]
  - Nasopharyngitis [Unknown]
  - SAPHO syndrome [Recovered/Resolved]
  - Maternal exposure during pregnancy [Unknown]
  - Abortion [Unknown]
  - Fibromyalgia [Recovered/Resolved]
  - Bursitis [Unknown]
  - Tenosynovitis [Unknown]
  - Tendon disorder [Unknown]
  - Sleep disorder [Unknown]
  - Fatigue [Unknown]
  - Disturbance in attention [Unknown]
  - Cyst [Unknown]
  - SAPHO syndrome [Recovered/Resolved]

NARRATIVE: CASE EVENT DATE: 20231201
